FAERS Safety Report 7351358-5 (Version None)
Quarter: 2011Q1

REPORT INFORMATION
  Report Type: 
  Country: None (occurrence: None)
  Receive Date: 20110314
  Receipt Date: 20110302
  Transmission Date: 20110831
  Serious: Yes (Hospitalization, Other)
  Sender: FDA-Public Use
  Company Number: PHHY2011US06526

PATIENT
  Sex: Male
  Weight: 73 kg

DRUGS (1)
  1. EXJADE [Suspect]
     Indication: MYELODYSPLASTIC SYNDROME
     Dosage: 2500 MG, DAILY
     Route: 048

REACTIONS (2)
  - HIP FRACTURE [None]
  - FALL [None]
